FAERS Safety Report 16564448 (Version 1)
Quarter: 2019Q3

REPORT INFORMATION
  Report Type: Spontaneous
  Country: US (occurrence: US)
  Receive Date: 20190712
  Receipt Date: 20190712
  Transmission Date: 20191004
  Serious: No
  Sender: FDA-Public Use
  Company Number: US-TEVA-2019-US-1072820

PATIENT
  Sex: Female

DRUGS (2)
  1. AUSTEDO [Suspect]
     Active Substance: DEUTETRABENAZINE
     Indication: HUNTINGTON^S DISEASE
     Dosage: DOSING REGIMEN UNKNOWN
  2. AUSTEDO [Suspect]
     Active Substance: DEUTETRABENAZINE
     Dosage: 24 MILLIGRAM DAILY; PATIENT^S CURRENT DOSE
     Route: 048

REACTIONS (5)
  - General physical health deterioration [Unknown]
  - Panic attack [Unknown]
  - Fall [Unknown]
  - Dyskinesia [Unknown]
  - Anxiety [Unknown]

NARRATIVE: CASE EVENT DATE: 2019
